FAERS Safety Report 4269333-6 (Version None)
Quarter: 2004Q1

REPORT INFORMATION
  Report Type: 
  Country: None (occurrence: None)
  Receive Date: 20040108
  Receipt Date: 20031222
  Transmission Date: 20041129
  Serious: Yes (Hospitalization)
  Sender: FDA-Public Use
  Company Number: A01200305993

PATIENT
  Age: 64 Year
  Sex: Male

DRUGS (7)
  1. PLAVIX [Suspect]
     Indication: CORONARY ARTERIAL STENT INSERTION
     Dosage: 75 MG QD / 75 MG OD, ORAL
     Route: 048
     Dates: start: 20030623, end: 20030901
  2. PLAVIX [Suspect]
     Indication: CORONARY ARTERIAL STENT INSERTION
     Dosage: 75 MG QD / 75 MG OD, ORAL
     Route: 048
     Dates: start: 20030906, end: 20031118
  3. ZOCOR [Suspect]
     Indication: HYPERCHOLESTEROLAEMIA
     Dosage: 20 MG QD / 40 MG QD ORAL
     Route: 048
     Dates: start: 20010401, end: 20021201
  4. ZOCOR [Suspect]
     Indication: HYPERCHOLESTEROLAEMIA
     Dosage: 20 MG QD / 40 MG QD ORAL
     Route: 048
     Dates: start: 20021201, end: 20031118
  5. ASPIRIN [Concomitant]
  6. BISOPROLOL FUMARATE [Concomitant]
  7. GLIPIZIDE [Concomitant]

REACTIONS (5)
  - BLOOD ALBUMIN INCREASED [None]
  - CYTOLYTIC HEPATITIS [None]
  - DECREASED APPETITE [None]
  - JAUNDICE CHOLESTATIC [None]
  - WEIGHT DECREASED [None]
